FAERS Safety Report 15210598 (Version 1)
Quarter: 2018Q3

REPORT INFORMATION
  Report Type: Report from Study
  Country: FR (occurrence: FR)
  Receive Date: 20180728
  Receipt Date: 20180728
  Transmission Date: 20181010
  Serious: Yes (Hospitalization)
  Sender: FDA-Public Use
  Company Number: FR-TEVA-2018-FR-931724

PATIENT
  Age: 66 Year
  Sex: Male
  Weight: 77 kg

DRUGS (5)
  1. 5? FLUOROURACIL [Suspect]
     Active Substance: FLUOROURACIL
     Indication: COLORECTAL CANCER METASTATIC
     Dosage: BOLUS
     Route: 040
     Dates: start: 20170123
  2. IRINOTECAN HYDROCHLORIDE. [Suspect]
     Active Substance: IRINOTECAN HYDROCHLORIDE
     Indication: COLORECTAL CANCER METASTATIC
     Route: 065
     Dates: start: 20170123
  3. AVASTIN [Suspect]
     Active Substance: BEVACIZUMAB
     Indication: COLORECTAL CANCER METASTATIC
     Route: 065
     Dates: start: 20170123
  4. OXALIPLATINE [Suspect]
     Active Substance: OXALIPLATIN
     Indication: COLORECTAL CANCER METASTATIC
     Route: 065
     Dates: start: 20170123
  5. 5? FLUOROURACIL [Suspect]
     Active Substance: FLUOROURACIL
     Dosage: IN CONTINUOUS DOSING
     Route: 065
     Dates: start: 20170123

REACTIONS (1)
  - Febrile neutropenia [Recovered/Resolved]

NARRATIVE: CASE EVENT DATE: 20170131
